FAERS Safety Report 8446148-6 (Version None)
Quarter: 2012Q2

REPORT INFORMATION
  Report Type: 
  Country: None (occurrence: None)
  Receive Date: 20120618
  Receipt Date: 20120607
  Transmission Date: 20120825
  Serious: Yes (Other)
  Sender: FDA-Public Use
  Company Number: GB-PFIZER INC-2012144439

PATIENT

DRUGS (1)
  1. TOLTERODINE TARTRATE [Suspect]

REACTIONS (1)
  - BLOOD SODIUM INCREASED [None]
